FAERS Safety Report 17127666 (Version 1)
Quarter: 2019Q4

REPORT INFORMATION
  Report Type: Spontaneous
  Country: US (occurrence: US)
  Receive Date: 20191206
  Receipt Date: 20191206
  Transmission Date: 20200122
  Serious: No
  Sender: FDA-Public Use
  Company Number: None

PATIENT
  Age: 67 Year
  Sex: Female
  Weight: 57.15 kg

DRUGS (6)
  1. SIMVASTATIN. [Concomitant]
     Active Substance: SIMVASTATIN
  2. CALCIUM VITAMIN D 500 TWICE A DAY [Concomitant]
  3. PROLIA 60 MG/ML SYRG INJECTION [Concomitant]
  4. LEVOTHYROXINE. [Concomitant]
     Active Substance: LEVOTHYROXINE
  5. PROLIA [Suspect]
     Active Substance: DENOSUMAB
     Indication: OSTEOPOROSIS
     Dosage: ?          OTHER FREQUENCY:SIX MONTHS SHOT;?
     Route: 030
     Dates: start: 20180101, end: 20191001
  6. MULTIVERSES [Concomitant]

REACTIONS (2)
  - Back pain [None]
  - Alopecia [None]

NARRATIVE: CASE EVENT DATE: 20190201
